FAERS Safety Report 19027495 (Version 1)
Quarter: 2021Q1

REPORT INFORMATION
  Report Type: Spontaneous
  Country: US (occurrence: US)
  Receive Date: 20210319
  Receipt Date: 20210319
  Transmission Date: 20210420
  Serious: Yes (Death, Other)
  Sender: FDA-Public Use
  Company Number: US-ASTRAZENECA-2021A158090

PATIENT
  Sex: Female

DRUGS (2)
  1. BRILINTA [Suspect]
     Active Substance: TICAGRELOR
     Dosage: UNKNOWN
     Route: 048
  2. XELJANZ [Suspect]
     Active Substance: TOFACITINIB CITRATE
     Indication: RHEUMATOID ARTHRITIS
     Route: 065
     Dates: start: 202101

REACTIONS (10)
  - Fall [Fatal]
  - Pain in extremity [Recovering/Resolving]
  - Product dose omission issue [Unknown]
  - Product distribution issue [Unknown]
  - Finger deformity [Unknown]
  - Loss of personal independence in daily activities [Unknown]
  - Musculoskeletal discomfort [Unknown]
  - Dysstasia [Unknown]
  - Rheumatoid arthritis [Unknown]
  - Peripheral swelling [Unknown]
